FAERS Safety Report 17419131 (Version 1)
Quarter: 2020Q1

REPORT INFORMATION
  Report Type: Spontaneous
  Country: US (occurrence: US)
  Receive Date: 20200214
  Receipt Date: 20200214
  Transmission Date: 20200409
  Serious: Yes (Other)
  Sender: FDA-Public Use
  Company Number: US-GILEAD-2020-0448126

PATIENT
  Age: 60 Year
  Sex: Male
  Weight: 77.1 kg

DRUGS (1)
  1. HARVONI [Suspect]
     Active Substance: LEDIPASVIR\SOFOSBUVIR
     Indication: HEPATITIS C
     Dosage: 1 DOSAGE FORM
     Route: 048

REACTIONS (2)
  - Treatment failure [Not Recovered/Not Resolved]
  - Intentional product use issue [Not Recovered/Not Resolved]
